FAERS Safety Report 8430483-1 (Version None)
Quarter: 2012Q2

REPORT INFORMATION
  Report Type: 
  Country: None (occurrence: None)
  Receive Date: 20120612
  Receipt Date: 20120601
  Transmission Date: 20120825
  Serious: Yes (Other)
  Sender: FDA-Public Use
  Company Number: US-MYLANLABS-2012S1011255

PATIENT
  Sex: Female

DRUGS (3)
  1. SYNTHROID [Concomitant]
     Indication: HYPOTHYROIDISM
  2. LORAZEPAM [Suspect]
     Route: 048
     Dates: start: 20120523, end: 20120530
  3. LORAZEPAM [Suspect]
     Indication: ANXIETY
     Route: 048
     Dates: start: 20100101, end: 20120523

REACTIONS (4)
  - ABDOMINAL PAIN UPPER [None]
  - FEELING ABNORMAL [None]
  - DYSPNOEA [None]
  - DRUG WITHDRAWAL SYNDROME [None]
